FAERS Safety Report 5676979-7 (Version None)
Quarter: 2008Q1

REPORT INFORMATION
  Report Type: 
  Country: None (occurrence: None)
  Receive Date: 20080324
  Receipt Date: 20080314
  Transmission Date: 20080703
  Serious: Yes (Hospitalization)
  Sender: FDA-Public Use
  Company Number: US-AVENTIS-200811663US

PATIENT
  Sex: Female

DRUGS (2)
  1. TAXOTERE [Suspect]
     Dosage: DOSE: 30 MG/M2 (DOSE 48 MG)
     Route: 042
     Dates: start: 20080227, end: 20080227
  2. TAXOTERE [Suspect]
     Dosage: DOSE: 30 MG/M2 (DOSE 48 MG)
     Route: 042
     Dates: start: 20080305, end: 20080305

REACTIONS (2)
  - ANAEMIA [None]
  - BLOOD CREATININE INCREASED [None]
